FAERS Safety Report 8877299 (Version 1)
Quarter: 2012Q4

REPORT INFORMATION
  Report Type: Spontaneous
  Country: DK (occurrence: None)
  Receive Date: 20121025
  Receipt Date: 20121025
  Transmission Date: 20130627
  Serious: Yes (Other)
  Sender: FDA-Public Use
  Company Number: 2012MA012651

PATIENT
  Sex: Female

DRUGS (1)
  1. MIRTAZAPINE TABLETS [Suspect]

REACTIONS (12)
  - Drug withdrawal syndrome [None]
  - Pyrexia [None]
  - Hyperhidrosis [None]
  - Dry throat [None]
  - Dysphagia [None]
  - Arthralgia [None]
  - Depressed mood [None]
  - Insomnia [None]
  - Decreased appetite [None]
  - Headache [None]
  - Eye swelling [None]
  - Suicidal ideation [None]
